FAERS Safety Report 5254654-0 (Version None)
Quarter: 2007Q1

REPORT INFORMATION
  Report Type: 
  Country: None (occurrence: None)
  Receive Date: 20070302
  Receipt Date: 20070220
  Transmission Date: 20070707
  Serious: Yes (Other)
  Sender: FDA-Public Use
  Company Number: US-PFIZER INC-2007015105

PATIENT
  Sex: Female

DRUGS (4)
  1. CHANTIX [Suspect]
     Indication: SMOKING CESSATION THERAPY
     Dates: start: 20061225, end: 20070214
  2. PREDNISONE [Suspect]
     Indication: SINUSITIS
  3. DECADRON [Suspect]
     Indication: SINUSITIS
  4. ALL OTHER THERAPEUTIC PRODUCTS [Concomitant]

REACTIONS (5)
  - EPISTAXIS [None]
  - HYPERHIDROSIS [None]
  - MUSCLE TIGHTNESS [None]
  - PANIC ATTACK [None]
  - SINUSITIS [None]
